FAERS Safety Report 13502813 (Version 1)
Quarter: 2017Q2

REPORT INFORMATION
  Report Type: Spontaneous
  Country: US (occurrence: US)
  Receive Date: 20170501
  Receipt Date: 20170501
  Transmission Date: 20170830
  Serious: Yes (Hospitalization)
  Sender: FDA-Public Use
  Company Number: None

PATIENT
  Age: 52 Year
  Sex: Female

DRUGS (4)
  1. TYLENOL [Concomitant]
     Active Substance: ACETAMINOPHEN
  2. PEMBROLIZUMAB 200MG MERCK RESEARCH LAB [Suspect]
     Active Substance: PEMBROLIZUMAB
     Indication: METASTASES TO MENINGES
     Route: 042
     Dates: start: 20161110, end: 20161201
  3. PRILOSEC [Concomitant]
     Active Substance: OMEPRAZOLE MAGNESIUM
  4. DECADRON [Concomitant]
     Active Substance: DEXAMETHASONE

REACTIONS (3)
  - Abasia [None]
  - Disease progression [None]
  - Abdominal pain [None]

NARRATIVE: CASE EVENT DATE: 20161211
